FAERS Safety Report 8361907-6 (Version None)
Quarter: 2012Q2

REPORT INFORMATION
  Report Type: 
  Country: None (occurrence: None)
  Receive Date: 20120515
  Receipt Date: 20120510
  Transmission Date: 20120825
  Serious: Yes (Other)
  Sender: FDA-Public Use
  Company Number: US-TEVA-337780USA

PATIENT
  Sex: Male

DRUGS (2)
  1. AZILECT [Suspect]
     Route: 048
  2. PRAMIPEXOLE DIHYDROCHLORIDE [Interacting]

REACTIONS (2)
  - DRUG INTERACTION [None]
  - SEROTONIN SYNDROME [None]
